FAERS Safety Report 4567504-2 (Version None)
Quarter: 2005Q1

REPORT INFORMATION
  Report Type: 
  Country: None (occurrence: None)
  Receive Date: 20050127
  Receipt Date: 20050114
  Transmission Date: 20050727
  Serious: Yes (Death)
  Sender: FDA-Public Use
  Company Number: 2005RL000003

PATIENT
  Age: 63 Year
  Sex: Male

DRUGS (9)
  1. PROPAFENONE HCL [Suspect]
     Indication: ARRHYTHMIA
     Dosage: 300 MG;TID;PO
     Route: 048
     Dates: start: 20041028, end: 20041101
  2. METOPROLOL (METOPROLOL0) [Suspect]
     Indication: ARRHYTHMIA
     Dosage: 50 MG;QD;PO
     Route: 048
     Dates: start: 20041021, end: 20041101
  3. ACETYLSALICYLIC ACID SRT [Concomitant]
  4. ORFARIN                      /TUR/ [Concomitant]
  5. RAMIPRIL [Concomitant]
  6. GLUCOPHAGE [Concomitant]
  7. DIAZEPAM [Concomitant]
  8. BETAXOLOL HYDROCHLORIDE [Concomitant]
  9. OCUVITE [Concomitant]

REACTIONS (3)
  - ARRHYTHMIA [None]
  - CARDIAC FAILURE [None]
  - RESPIRATORY FAILURE [None]
